FAERS Safety Report 20154760 (Version 2)
Quarter: 2022Q2

REPORT INFORMATION
  Report Type: Spontaneous
  Country: US (occurrence: US)
  Receive Date: 20211207
  Receipt Date: 20220519
  Transmission Date: 20220721
  Serious: Yes (Other)
  Sender: FDA-Public Use
  Company Number: US-NOVARTISPH-NVSC2021US274955

PATIENT
  Sex: Female

DRUGS (1)
  1. ADAKVEO [Suspect]
     Active Substance: CRIZANLIZUMAB-TMCA
     Indication: Product used for unknown indication
     Dosage: UNK
     Route: 041
     Dates: start: 20211122

REACTIONS (3)
  - Sickle cell anaemia with crisis [Unknown]
  - Acute chest syndrome [Unknown]
  - Anaemia [Unknown]

NARRATIVE: CASE EVENT DATE: 20211122
